FAERS Safety Report 5890280-8 (Version None)
Quarter: 2008Q3

REPORT INFORMATION
  Report Type: 
  Country: None (occurrence: None)
  Receive Date: 20080918
  Receipt Date: 20080903
  Transmission Date: 20090109
  Serious: Yes (Other)
  Sender: FDA-Public Use
  Company Number: 2008S1016086

PATIENT
  Age: 8 Year
  Sex: Male

DRUGS (1)
  1. ETOPOSIDE [Suspect]
     Indication: EPENDYMOMA
     Dosage: 5 0 MG/M**2; EVERY THREE WEEKS;
     Dates: start: 20080401, end: 20080601

REACTIONS (1)
  - LYMPHOPENIA [None]
